FAERS Safety Report 21089691 (Version 1)
Quarter: 2022Q3

REPORT INFORMATION
  Report Type: Spontaneous
  Country: PL (occurrence: None)
  Receive Date: 20220715
  Receipt Date: 20220715
  Transmission Date: 20221027
  Serious: Yes (Other)
  Sender: FDA-Public Use
  Company Number: 2022A255723

PATIENT
  Age: 64 Year
  Sex: Male

DRUGS (7)
  1. OMEPRAZOLE [Interacting]
     Active Substance: OMEPRAZOLE
     Indication: Gastric disorder
     Route: 048
  2. WARFARIN [Interacting]
     Active Substance: WARFARIN
     Route: 065
  3. METOPROLOL [Concomitant]
     Active Substance: METOPROLOL
     Indication: Atrial fibrillation
     Route: 065
  4. LORNOXICAM [Concomitant]
     Active Substance: LORNOXICAM
     Dosage: AT A DOSE OF 8 MG / 24
  5. SODIUM CHONDROITIN SULFATE [Concomitant]
     Active Substance: SODIUM CHONDROITIN SULFATE
     Dosage: 1500 MG / 24 H
  6. TAMSULOSIN [Concomitant]
     Active Substance: TAMSULOSIN
     Dosage: 0.4 MG / 24 H
  7. PROPAFENONE [Concomitant]
     Active Substance: PROPAFENONE
     Dosage: 300 MG / 24 H

REACTIONS (3)
  - Upper gastrointestinal haemorrhage [Unknown]
  - Drug interaction [Unknown]
  - Haematuria [Unknown]
